FAERS Safety Report 8533859-7 (Version None)
Quarter: 2012Q3

REPORT INFORMATION
  Report Type: 
  Country: None (occurrence: None)
  Receive Date: 20120724
  Receipt Date: 20120713
  Transmission Date: 20120928
  Serious: Yes (Hospitalization)
  Sender: FDA-Public Use
  Company Number: US-ROCHE-1052091

PATIENT
  Sex: Male

DRUGS (5)
  1. RIBAVIRIN [Suspect]
     Indication: HEPATITIS C
     Route: 048
     Dates: start: 20120113
  2. RIBAVIRIN [Suspect]
  3. PEGASYS [Suspect]
     Indication: HEPATITIS C
     Route: 058
     Dates: start: 20120113
  4. PEGASYS [Suspect]
  5. TELAPREVIR [Suspect]
     Indication: HEPATITIS C
     Dates: start: 20120113

REACTIONS (4)
  - RED BLOOD CELL COUNT DECREASED [None]
  - MALAISE [None]
  - INCORRECT DOSE ADMINISTERED [None]
  - WHITE BLOOD CELL COUNT DECREASED [None]
